FAERS Safety Report 9841246 (Version 1)
Quarter: 2013Q4

REPORT INFORMATION
  Report Type: Spontaneous
  Country: PL (occurrence: None)
  Receive Date: 20131211
  Receipt Date: 20131211
  Transmission Date: 20140711
  Serious: Yes (Hospitalization)
  Sender: FDA-Public Use
  Company Number: SPV1-2008-01991

PATIENT
  Age: 6 Year
  Sex: Male
  Weight: 28.5 kg

DRUGS (2)
  1. IDURSULFASE (IDURSULFASE) CONCENTRATE FOR SOLUTION FOR INFUSION [Suspect]
     Indication: MUCOPOLYSACCHARIDOSIS II
     Route: 041
     Dates: start: 20080722
  2. PARACETAMOL (PARACETAMOL) [Concomitant]

REACTIONS (2)
  - Pyrexia [None]
  - Infusion related reaction [None]
